FAERS Safety Report 17109019 (Version 2)
Quarter: 2019Q4

REPORT INFORMATION
  Report Type: Spontaneous
  Country: FR (occurrence: FR)
  Receive Date: 20191204
  Receipt Date: 20191211
  Transmission Date: 20200122
  Serious: Yes (Hospitalization, Other)
  Sender: FDA-Public Use
  Company Number: FR-ABBVIE-19K-056-3175204-00

PATIENT
  Age: 58 Year
  Sex: Female

DRUGS (3)
  1. NORVIR [Suspect]
     Active Substance: RITONAVIR
     Indication: HIV INFECTION
     Dosage: 100 MILLIGRAM (BOOSTED BY 100MG)
     Route: 065
  2. DARUNAVIR [Interacting]
     Active Substance: DARUNAVIR
     Indication: HIV INFECTION
     Route: 065
  3. QUETIAPINE. [Interacting]
     Active Substance: QUETIAPINE
     Indication: BIPOLAR DISORDER
     Dosage: PROLONGED RELEASE FORM; A LONG-TERM TREATMENT
     Route: 065

REACTIONS (4)
  - Psychomotor skills impaired [Unknown]
  - Drug interaction [Unknown]
  - Syncope [Unknown]
  - Overdose [Unknown]
